FAERS Safety Report 16639289 (Version 1)
Quarter: 2019Q3

REPORT INFORMATION
  Report Type: Report from Study
  Country: None (occurrence: US)
  Receive Date: 20190726
  Receipt Date: 20190726
  Transmission Date: 20191004
  Serious: Yes (Hospitalization)
  Sender: FDA-Public Use
  Company Number: US-BIOVITRUM-2019US2165

PATIENT
  Sex: Male

DRUGS (2)
  1. KINERET [Suspect]
     Active Substance: ANAKINRA
     Indication: AUTOINFLAMMATORY DISEASE
  2. KINERET [Suspect]
     Active Substance: ANAKINRA
     Indication: SEIZURE
     Dosage: 200 MG IN AM, 100 MG MID-DAY, AND 100 MG IN PM
     Route: 058

REACTIONS (3)
  - Injection site reaction [Unknown]
  - Off label use [Not Recovered/Not Resolved]
  - Seizure [Unknown]

NARRATIVE: CASE EVENT DATE: 2019
